FAERS Safety Report 5930011-6 (Version None)
Quarter: 2008Q4

REPORT INFORMATION
  Report Type: 
  Country: None (occurrence: None)
  Receive Date: 20081024
  Receipt Date: 20081014
  Transmission Date: 20090506
  Serious: Yes (Other)
  Sender: FDA-Public Use
  Company Number: JP-PFIZER INC-2008084792

PATIENT
  Age: 74 Year
  Sex: Male

DRUGS (2)
  1. UNASYN [Suspect]
     Dosage: TEXT:3 G
  2. CARBAMAZEPINE [Concomitant]

REACTIONS (2)
  - RASH [None]
  - SWELLING [None]
